FAERS Safety Report 6144490-5 (Version None)
Quarter: 2009Q2

REPORT INFORMATION
  Report Type: 
  Country: None (occurrence: None)
  Receive Date: 20090406
  Receipt Date: 20090401
  Transmission Date: 20091009
  Serious: Yes (Death, Hospitalization, Other)
  Sender: FDA-Public Use
  Company Number: JP-ASTRAZENECA-2009AP01216

PATIENT
  Age: 72 Year
  Sex: Male
  Weight: 59 kg

DRUGS (8)
  1. IRESSA [Suspect]
     Indication: LUNG ADENOCARCINOMA
     Route: 048
     Dates: start: 20080826, end: 20081006
  2. IRESSA [Suspect]
     Route: 048
     Dates: end: 20081025
  3. IRESSA [Suspect]
     Route: 048
     Dates: start: 20090108, end: 20090113
  4. PURSENNID [Concomitant]
     Indication: CONSTIPATION
     Route: 048
     Dates: start: 20080827, end: 20080827
  5. PURSENNID [Concomitant]
     Route: 048
     Dates: start: 20081209, end: 20090121
  6. ALOSENN [Concomitant]
     Indication: CONSTIPATION
     Route: 048
     Dates: start: 20080827, end: 20080903
  7. DESPA [Concomitant]
     Indication: STOMATITIS
     Dosage: APPROPRIATE AMOUNT
     Route: 062
     Dates: start: 20080904
  8. ANDERM [Concomitant]
     Indication: DRY SKIN
     Dosage: APPROPRIATE AMOUNT
     Route: 062
     Dates: start: 20090121

REACTIONS (5)
  - DECREASED APPETITE [None]
  - HEPATIC FUNCTION ABNORMAL [None]
  - LUNG DISORDER [None]
  - MALAISE [None]
  - SKIN EROSION [None]
